FAERS Safety Report 24806772 (Version 1)
Quarter: 2025Q1

REPORT INFORMATION
  Report Type: Report from Study
  Country: FR (occurrence: FR)
  Receive Date: 20250104
  Receipt Date: 20250104
  Transmission Date: 20250408
  Serious: Yes (Life-Threatening, Hospitalization, Other)
  Sender: AUROBINDO
  Company Number: FR-ABBVIE-6050314

PATIENT

DRUGS (7)
  1. AZACITIDINE [Suspect]
     Active Substance: AZACITIDINE
     Indication: Blastic plasmacytoid dendritic cell neoplasia
     Route: 065
  2. VENETOCLAX [Suspect]
     Active Substance: VENETOCLAX
     Indication: Blastic plasmacytoid dendritic cell neoplasia
     Dosage: 400 MILLIGRAM, ONCE A DAY
     Route: 048
  3. BORTEZOMIB [Concomitant]
     Active Substance: BORTEZOMIB
     Indication: Blastic plasmacytoid dendritic cell neoplasia
     Route: 058
  4. BORTEZOMIB [Concomitant]
     Active Substance: BORTEZOMIB
     Route: 058
  5. BORTEZOMIB [Concomitant]
     Active Substance: BORTEZOMIB
     Route: 058
  6. BORTEZOMIB [Concomitant]
     Active Substance: BORTEZOMIB
     Route: 058
  7. DEXAMETHASONE [Concomitant]
     Active Substance: DEXAMETHASONE
     Indication: Blastic plasmacytoid dendritic cell neoplasia
     Dosage: 20 MILLIGRAM, EVERY WEEK
     Route: 065

REACTIONS (3)
  - Cytopenia [Unknown]
  - Infection [Unknown]
  - Off label use [Unknown]
